FAERS Safety Report 12365331 (Version 5)
Quarter: 2016Q3

REPORT INFORMATION
  Report Type: Report from Study
  Country: DE (occurrence: DE)
  Receive Date: 20160512
  Receipt Date: 20160705
  Transmission Date: 20161109
  Serious: Yes (Death)
  Sender: FDA-Public Use
  Company Number: DE-ROCHE-1755165

PATIENT
  Age: 79 Year
  Sex: Female
  Weight: 90 kg

DRUGS (24)
  1. BISOPROLOL [Concomitant]
     Active Substance: BISOPROLOL
     Route: 065
     Dates: start: 20030516
  2. MAGNESIOCARD [Concomitant]
     Active Substance: MAGNESIUM ASPARTATE HYDROCHLORIDE
     Route: 065
     Dates: start: 2010
  3. SIMVAST [Concomitant]
     Route: 065
     Dates: start: 200005
  4. VERGENTAN [Concomitant]
     Dosage: 2 AMPULE
     Route: 065
     Dates: start: 20160422, end: 20160422
  5. BEKUNIS DRAGEES (GERMANY) [Concomitant]
     Route: 065
     Dates: start: 2009
  6. NOVAMINSULFON [Concomitant]
     Active Substance: METAMIZOLE
     Indication: ABDOMINAL PAIN
     Route: 065
     Dates: start: 20160504
  7. VERGENTAN [Concomitant]
     Indication: NAUSEA
     Dosage: 2 AMPULE
     Route: 065
     Dates: start: 20160414, end: 20160414
  8. MICROLAX (GERMANY) [Concomitant]
     Indication: CONSTIPATION
     Route: 065
     Dates: start: 20160504
  9. ALIZAPRIDE [Concomitant]
     Active Substance: ALIZAPRIDE
     Indication: NAUSEA
     Route: 065
     Dates: start: 20160315
  10. HOGGAR NIGHT [Concomitant]
     Route: 065
     Dates: start: 2013
  11. BEVACIZUMAB [Suspect]
     Active Substance: BEVACIZUMAB
     Indication: COLORECTAL CANCER METASTATIC
     Dosage: MOST RECENT DOSE PRIOR TO SAE ON 19/APR/2016 AT 10:30 (450 MG)
     Route: 042
     Dates: start: 20160202
  12. DEXAMETHASONE. [Concomitant]
     Active Substance: DEXAMETHASONE
     Dosage: CHEMOTHERAPY CONCOMITANT
     Route: 065
     Dates: start: 20160202, end: 20160419
  13. FOLINIC ACID [Suspect]
     Active Substance: LEUCOVORIN
     Indication: COLORECTAL CANCER METASTATIC
     Dosage: MOST RECENT DOSE PRIOR TO SAE ON 19/APR/2016 AT 11:00
     Route: 042
     Dates: start: 20160202
  14. LAXOBERAL [Concomitant]
     Active Substance: SODIUM PICOSULFATE
     Indication: CONSTIPATION
     Route: 065
     Dates: start: 20160504, end: 20160506
  15. NOVALGIN [Concomitant]
     Active Substance: METAMIZOLE SODIUM
     Indication: ABDOMINAL PAIN
     Dosage: 1 AMPULE
     Route: 065
     Dates: start: 20160504, end: 20160504
  16. 5-FLUOROURACIL [Suspect]
     Active Substance: FLUOROURACIL
     Indication: COLORECTAL CANCER METASTATIC
     Dosage: MOST RECENT DOSE PRIOR TO SAE ON 19/APR/2016 AT 11:00
     Route: 042
     Dates: start: 20160202
  17. JODID [Concomitant]
     Active Substance: IODINE
     Route: 065
     Dates: start: 20060816
  18. LOPERAMIDE [Concomitant]
     Active Substance: LOPERAMIDE
     Indication: DIARRHOEA
     Route: 065
     Dates: start: 20160317
  19. MCP [Concomitant]
     Active Substance: METOCLOPRAMIDE HYDROCHLORIDE
     Route: 065
     Dates: start: 20160202
  20. STEROFUNDIN [Concomitant]
     Indication: CONSTIPATION
     Route: 065
     Dates: start: 20160504, end: 20160504
  21. VALSACOR COMP [Concomitant]
     Route: 065
     Dates: start: 20030516
  22. PALONOSETRON [Concomitant]
     Active Substance: PALONOSETRON
     Route: 065
     Dates: start: 20160202
  23. OXALIPLATIN. [Suspect]
     Active Substance: OXALIPLATIN
     Indication: COLORECTAL CANCER METASTATIC
     Dosage: MOST RECENT DOSE PRIOR TO SAE ON 19/APR/2016 AT 11:00
     Route: 042
     Dates: start: 20160202
  24. MACROGOL [Concomitant]
     Active Substance: POLYETHYLENE GLYCOLS
     Indication: CONSTIPATION
     Route: 065
     Dates: start: 20160504

REACTIONS (1)
  - Sudden death [Fatal]

NARRATIVE: CASE EVENT DATE: 20160508
